FAERS Safety Report 6012981-3 (Version None)
Quarter: 2008Q4

REPORT INFORMATION
  Report Type: 
  Country: None (occurrence: None)
  Receive Date: 20081219
  Receipt Date: 20081208
  Transmission Date: 20090506
  Serious: Yes (Death)
  Sender: FDA-Public Use
  Company Number: PL-BAYER-200831412GPV

PATIENT
  Age: 68 Year
  Sex: Male
  Weight: 58 kg

DRUGS (7)
  1. ULTRAVIST 370 [Suspect]
     Indication: COMPUTERISED TOMOGRAM
     Route: 042
     Dates: start: 20081107, end: 20081107
  2. PLAVIX [Concomitant]
     Indication: MYOCARDIAL ISCHAEMIA
     Route: 048
     Dates: start: 20081001, end: 20081107
  3. POLOCARD [Concomitant]
     Indication: MYOCARDIAL ISCHAEMIA
     Route: 048
     Dates: start: 20081001, end: 20081107
  4. CLEXANE [Concomitant]
     Indication: CEREBRAL INFARCTION
     Route: 058
     Dates: start: 20081001, end: 20081107
  5. TRITACE [Concomitant]
     Indication: MYOCARDIAL ISCHAEMIA
     Route: 048
     Dates: start: 20081001, end: 20081107
  6. CONCOR COR [Concomitant]
     Indication: MYOCARDIAL ISCHAEMIA
     Route: 048
     Dates: start: 20081001, end: 20081107
  7. MANNITOL 20% [Concomitant]
     Indication: CEREBRAL INFARCTION
     Route: 042
     Dates: start: 20081101, end: 20081107

REACTIONS (2)
  - CARDIAC ARREST [None]
  - LIVIDITY [None]
